FAERS Safety Report 5511393-6 (Version None)
Quarter: 2007Q4

REPORT INFORMATION
  Report Type: 
  Country: None (occurrence: None)
  Receive Date: 20071109
  Receipt Date: 20071005
  Transmission Date: 20080405
  Serious: No
  Sender: FDA-Public Use
  Company Number: A0686712A

PATIENT
  Sex: Female

DRUGS (1)
  1. ALTABAX [Suspect]
     Route: 061

REACTIONS (4)
  - CONDITION AGGRAVATED [None]
  - DRUG INEFFECTIVE [None]
  - IMPAIRED HEALING [None]
  - SKIN ULCER [None]
